FAERS Safety Report 6208219-4 (Version None)
Quarter: 2009Q2

REPORT INFORMATION
  Report Type: 
  Country: None (occurrence: None)
  Receive Date: 20090522
  Receipt Date: 20090507
  Transmission Date: 20091009
  Serious: Yes (Life-Threatening, Hospitalization, Disabling, Other)
  Sender: FDA-Public Use
  Company Number: 2009S1008460

PATIENT
  Age: 64 Year
  Sex: Female

DRUGS (11)
  1. CLARITHROMYCIN [Suspect]
     Indication: RESPIRATORY TRACT INFECTION BACTERIAL
     Dosage: 500 MG; TWICE A DAY; ORAL
     Route: 048
  2. ALFACALCIDOL [Concomitant]
  3. AMOXICILLIN [Concomitant]
  4. ARANESP [Concomitant]
  5. ASPIRIN [Concomitant]
  6. CALCICHEW [Concomitant]
  7. FOLIC ACID [Concomitant]
  8. KETOVITE /00479801/ [Concomitant]
  9. LANSOPRAZOLE [Concomitant]
  10. SERETIDE [Concomitant]
  11. TIOTROPIUM BROMIDE [Concomitant]

REACTIONS (2)
  - CARDIAC ARREST [None]
  - VENTRICULAR TACHYCARDIA [None]
